FAERS Safety Report 7497809-7 (Version None)
Quarter: 2011Q2

REPORT INFORMATION
  Report Type: 
  Country: None (occurrence: None)
  Receive Date: 20110524
  Receipt Date: 20101223
  Transmission Date: 20111010
  Serious: Yes (Hospitalization, Other)
  Sender: FDA-Public Use
  Company Number: US-BAYER-201012153NA

PATIENT
  Age: 21 Year
  Sex: Female
  Weight: 72.562 kg

DRUGS (4)
  1. VICODIN [Concomitant]
  2. YAZ [Suspect]
     Indication: CONTRACEPTION
     Dosage: 1 DF (DAILY DOSE), QD, ORAL
     Route: 048
     Dates: start: 20070101, end: 20090501
  3. IV FLUIDS [Concomitant]
  4. ZANTAC [Concomitant]

REACTIONS (4)
  - GALLBLADDER INJURY [None]
  - CHOLECYSTITIS CHRONIC [None]
  - ABDOMINAL PAIN UPPER [None]
  - NAUSEA [None]
